FAERS Safety Report 7450085-3 (Version None)
Quarter: 2011Q2

REPORT INFORMATION
  Report Type: 
  Country: None (occurrence: None)
  Receive Date: 20110428
  Receipt Date: 20110428
  Transmission Date: 20111010
  Serious: Yes (Death)
  Sender: FDA-Public Use
  Company Number: None

PATIENT
  Age: 64 Year
  Sex: Male

DRUGS (12)
  1. GABAPENTIN [Concomitant]
  2. REVLIMID [Suspect]
     Indication: MULTIPLE MYELOMA
     Dosage: 10 MG DAILY X21D/28D ORALLY
     Route: 048
     Dates: start: 20100201, end: 20100701
  3. REVLIMID [Suspect]
     Indication: MULTIPLE MYELOMA
     Dosage: 10 MG DAILY X21D/28D ORALLY
     Route: 048
     Dates: start: 20060701, end: 20081201
  4. EPOETIN [Concomitant]
  5. DEXAMETHASONE [Concomitant]
  6. OMEPRAZOLE [Concomitant]
  7. LORAZEPAM [Concomitant]
  8. ONDANSETRON [Concomitant]
  9. SCOPOLAMINE [Concomitant]
  10. MEGESTROL ACETATE [Concomitant]
  11. SIMVASTATIN [Concomitant]
  12. MORPHINE [Concomitant]

REACTIONS (4)
  - RENAL IMPAIRMENT [None]
  - THROMBOCYTOPENIA [None]
  - MULTIPLE MYELOMA [None]
  - DISEASE PROGRESSION [None]
